FAERS Safety Report 10367461 (Version 1)
Quarter: 2014Q3

REPORT INFORMATION
  Report Type: Spontaneous
  Country: AU (occurrence: AU)
  Receive Date: 20140807
  Receipt Date: 20140807
  Transmission Date: 20150326
  Serious: Yes (Other)
  Sender: FDA-Public Use
  Company Number: PHHY2014AU096484

PATIENT
  Sex: Male

DRUGS (1)
  1. FAMVIR [Suspect]
     Active Substance: FAMCICLOVIR
     Indication: EAR INFECTION VIRAL
     Dosage: 1 DF, BID

REACTIONS (2)
  - Immunosuppression [Unknown]
  - Ear infection viral [Unknown]
